FAERS Safety Report 6025552-X (Version None)
Quarter: 2008Q4

REPORT INFORMATION
  Report Type: 
  Country: None (occurrence: None)
  Receive Date: 20081231
  Receipt Date: 20081217
  Transmission Date: 20090506
  Serious: Yes (Other)
  Sender: FDA-Public Use
  Company Number: GB-GENENTECH-274657

PATIENT
  Age: 52 Year
  Sex: Female

DRUGS (1)
  1. RITUXIMAB [Suspect]
     Indication: NEUROMYELITIS OPTICA

REACTIONS (1)
  - NEUROMYELITIS OPTICA [None]
